APPROVED DRUG PRODUCT: LOTEMAX
Active Ingredient: LOTEPREDNOL ETABONATE
Strength: 0.5%
Dosage Form/Route: GEL;OPHTHALMIC
Application: N202872 | Product #001 | TE Code: AB
Applicant: BAUSCH AND LOMB INC
Approved: Sep 28, 2012 | RLD: Yes | RS: Yes | Type: RX